FAERS Safety Report 5767301-6 (Version None)
Quarter: 2008Q2

REPORT INFORMATION
  Report Type: 
  Country: None (occurrence: None)
  Receive Date: 20080611
  Receipt Date: 20080611
  Transmission Date: 20081010
  Serious: Yes (Hospitalization)
  Sender: FDA-Public Use
  Company Number: None

PATIENT
  Age: 55 Year
  Sex: Male
  Weight: 104 kg

DRUGS (2)
  1. DIPRIVAN [Suspect]
     Indication: ANAESTHESIA
     Dosage: 100 ML DURING ENDOSCOPY IV DRIP
     Route: 041
     Dates: start: 20080605, end: 20080605
  2. DIPRIVAN [Suspect]
     Indication: ENDOSCOPY
     Dosage: 100 ML DURING ENDOSCOPY IV DRIP
     Route: 041
     Dates: start: 20080605, end: 20080605

REACTIONS (2)
  - CHILLS [None]
  - PYREXIA [None]
